FAERS Safety Report 8181241-7 (Version None)
Quarter: 2012Q1

REPORT INFORMATION
  Report Type: 
  Country: None (occurrence: None)
  Receive Date: 20120302
  Receipt Date: 20120224
  Transmission Date: 20120608
  Serious: Yes (Hospitalization)
  Sender: FDA-Public Use
  Company Number: US-US-EMD SERONO, INC.-7105893

PATIENT
  Sex: Female
  Weight: 64 kg

DRUGS (8)
  1. REBIF [Suspect]
     Indication: MULTIPLE SCLEROSIS
     Route: 058
     Dates: start: 20110225
  2. NORVASC [Concomitant]
     Indication: HYPERTENSION
  3. TRILEPTAL [Concomitant]
  4. ASPIRIN [Concomitant]
  5. FUROSEMIDE [Concomitant]
  6. LOPRESSOR [Concomitant]
     Indication: HYPERTENSION
  7. LIPITOR [Concomitant]
  8. PERSANTINE [Concomitant]

REACTIONS (2)
  - MULTIPLE SCLEROSIS RELAPSE [None]
  - URINARY TRACT INFECTION [None]
